FAERS Safety Report 8447177-9 (Version None)
Quarter: 2012Q2

REPORT INFORMATION
  Report Type: 
  Country: None (occurrence: None)
  Receive Date: 20120619
  Receipt Date: 20120615
  Transmission Date: 20120825
  Serious: No
  Sender: FDA-Public Use
  Company Number: US-PFIZER INC-2012145592

PATIENT

DRUGS (3)
  1. ZOLOFT [Suspect]
     Dosage: UNK
  2. ADDERALL 5 [Concomitant]
     Dosage: UNK
  3. SYNTHROID [Concomitant]
     Dosage: UNK

REACTIONS (2)
  - IMPULSE-CONTROL DISORDER [None]
  - GAMBLING [None]
